FAERS Safety Report 13307457 (Version 1)
Quarter: 2017Q1

REPORT INFORMATION
  Report Type: Spontaneous
  Country: FR (occurrence: FR)
  Receive Date: 20170308
  Receipt Date: 20170308
  Transmission Date: 20170428
  Serious: Yes (Hospitalization, Other)
  Sender: FDA-Public Use
  Company Number: FR-BRISTOL-MYERS SQUIBB COMPANY-BMS-2017-019090

PATIENT
  Age: 25 Year
  Sex: Female
  Weight: 60 kg

DRUGS (6)
  1. LYSODREN [Suspect]
     Active Substance: MITOTANE
     Indication: ADRENOCORTICAL CARCINOMA
     Dosage: 2 TAB, QD
     Route: 048
     Dates: start: 20150219, end: 20150221
  2. LYSODREN [Suspect]
     Active Substance: MITOTANE
     Indication: PRODUCT USED FOR UNKNOWN INDICATION
     Dosage: 2 TAB, TID
     Route: 048
  3. LYSODREN [Suspect]
     Active Substance: MITOTANE
     Indication: PRODUCT USED FOR UNKNOWN INDICATION
     Dosage: 4 TAB, BID
     Route: 048
  4. LYSODREN [Suspect]
     Active Substance: MITOTANE
     Indication: PRODUCT USED FOR UNKNOWN INDICATION
     Dosage: 3 TAB, BID
     Route: 048
  5. PARACETAMOL [Concomitant]
     Active Substance: ACETAMINOPHEN
     Indication: PRODUCT USED FOR UNKNOWN INDICATION
     Dosage: UNK
     Route: 065
  6. INEXIUM                            /01479302/ [Concomitant]
     Active Substance: ESOMEPRAZOLE MAGNESIUM
     Indication: PRODUCT USED FOR UNKNOWN INDICATION
     Dosage: UNK
     Route: 065

REACTIONS (31)
  - Disturbance in attention [Recovered/Resolved]
  - Loss of consciousness [Recovered/Resolved]
  - Asthenia [Unknown]
  - Pyelonephritis [Unknown]
  - Metabolic encephalopathy [Recovered/Resolved]
  - Nausea [Recovered/Resolved]
  - Vomiting [Recovered/Resolved]
  - Overdose [Unknown]
  - Headache [Unknown]
  - Intestinal transit time increased [Not Recovered/Not Resolved]
  - Decreased appetite [Recovering/Resolving]
  - Abdominal pain [Unknown]
  - Dysaesthesia [Recovered/Resolved]
  - Memory impairment [Recovered/Resolved]
  - Depression [Unknown]
  - Neutropenia [Unknown]
  - Product use issue [Unknown]
  - Mental impairment [Recovered/Resolved]
  - Malaise [Unknown]
  - Myalgia [Unknown]
  - Back pain [Unknown]
  - Weight decreased [Recovering/Resolving]
  - Metrorrhagia [Unknown]
  - Adrenalectomy [Unknown]
  - General physical health deterioration [Recovering/Resolving]
  - Cough [Unknown]
  - Formication [Recovered/Resolved]
  - Fall [Unknown]
  - Insomnia [Unknown]
  - Adrenal insufficiency [Recovering/Resolving]
  - Vertigo [Unknown]

NARRATIVE: CASE EVENT DATE: 20150226
